FAERS Safety Report 7273173-3 (Version None)
Quarter: 2011Q1

REPORT INFORMATION
  Report Type: 
  Country: None (occurrence: None)
  Receive Date: 20110203
  Receipt Date: 20101027
  Transmission Date: 20110831
  Serious: No
  Sender: FDA-Public Use
  Company Number: US-ABBOTT-10P-163-0681850-00

PATIENT
  Age: 15 Year
  Sex: Female

DRUGS (2)
  1. SYNTHROID [Suspect]
  2. SYNTHROID [Suspect]
     Indication: HYPOTHYROIDISM

REACTIONS (1)
  - DYSKINESIA [None]
